FAERS Safety Report 7216491-7 (Version None)
Quarter: 2011Q1

REPORT INFORMATION
  Report Type: 
  Country: None (occurrence: None)
  Receive Date: 20110107
  Receipt Date: 20101228
  Transmission Date: 20110831
  Serious: Yes (Other)
  Sender: FDA-Public Use
  Company Number: PHHY2010JP85777

PATIENT
  Age: 5 Year
  Sex: Female

DRUGS (8)
  1. PREDNISOLONE [Concomitant]
     Indication: BEHCET'S SYNDROME
     Dosage: 1 MG/KG
     Route: 048
  2. COLCHICINE [Concomitant]
     Indication: BEHCET'S SYNDROME
     Route: 048
  3. METHYLPREDNISOLONE [Concomitant]
     Dosage: 20 MG/KG/DAY
  4. TRANSFUSIONS [Suspect]
  5. METHYLPREDNISOLONE [Concomitant]
     Indication: BEHCET'S SYNDROME
     Dosage: 30 MG/KG
     Route: 042
  6. THALIDOMIDE [Concomitant]
  7. POLYGAM S/D [Concomitant]
     Dosage: 1 G/KG/DAY
  8. CYCLOSPORINE [Suspect]
     Indication: BEHCET'S SYNDROME
     Dosage: 4 MG/KG/DAY, ONCE-DAILY DOSE
     Route: 048

REACTIONS (10)
  - STEM CELL TRANSPLANT [None]
  - EPSTEIN-BARR VIRUS ASSOCIATED LYMPHOPROLIFERATIVE DISORDER [None]
  - PYREXIA [None]
  - GENERAL PHYSICAL HEALTH DETERIORATION [None]
  - OSTEOPOROSIS [None]
  - HISTIOCYTOSIS HAEMATOPHAGIC [None]
  - LYMPHOHISTIOCYTOSIS [None]
  - THROMBOCYTOPENIA [None]
  - HEPATIC FUNCTION ABNORMAL [None]
  - LEUKOPENIA [None]
